FAERS Safety Report 6894970-X (Version None)
Quarter: 2010Q3

REPORT INFORMATION
  Report Type: 
  Country: None (occurrence: None)
  Receive Date: 20100802
  Receipt Date: 20100722
  Transmission Date: 20110219
  Serious: Yes (Other)
  Sender: FDA-Public Use
  Company Number: US-SANOFI-AVENTIS-2010SA030640

PATIENT
  Age: 77 Year
  Sex: Female
  Weight: 72.57 kg

DRUGS (6)
  1. LANTUS [Suspect]
     Indication: INSULIN-REQUIRING TYPE 2 DIABETES MELLITUS
     Dosage: DOSE:32 UNIT(S)
     Route: 058
  2. OPTICLICK [Suspect]
     Indication: INSULIN-REQUIRING TYPE 2 DIABETES MELLITUS
  3. METFORMIN HCL [Concomitant]
     Dosage: FIVE TIMES A DAY
  4. ACTOS [Concomitant]
  5. RAMIPRIL [Concomitant]
  6. LIPITOR [Concomitant]

REACTIONS (3)
  - FALL [None]
  - JOINT SPRAIN [None]
  - WRIST FRACTURE [None]
